FAERS Safety Report 18718665 (Version 1)
Quarter: 2021Q1

REPORT INFORMATION
  Report Type: Spontaneous
  Country: US (occurrence: US)
  Receive Date: 20210108
  Receipt Date: 20210108
  Transmission Date: 20210419
  Serious: Yes (Death, Hospitalization)
  Sender: FDA-Public Use
  Company Number: US-ALVOGEN-2021-ALVOGEN-115950

PATIENT
  Age: 50 Year
  Sex: Female

DRUGS (5)
  1. NAPROXEN. [Suspect]
     Active Substance: NAPROXEN
     Indication: SUICIDE ATTEMPT
     Dosage: ROUTE OF ADMINISTRATION: INGST
     Route: 048
  2. MELOXICAM. [Suspect]
     Active Substance: MELOXICAM
     Indication: SUICIDE ATTEMPT
     Dosage: ROUTE OF ADMINISTRATION: INGST
     Route: 048
  3. HYDROCHLOROTHIAZIDE/TRIAMTERENE [Suspect]
     Active Substance: HYDROCHLOROTHIAZIDE\TRIAMTERENE
     Indication: SUICIDE ATTEMPT
     Dosage: ROUTE OF ADMINISTRATION: INGST
     Route: 048
  4. TERAZOSIN [Suspect]
     Active Substance: TERAZOSIN HYDROCHLORIDE
     Indication: SUICIDE ATTEMPT
     Dosage: ROUTE OF ADMINISTRATION: INGST
     Route: 048
  5. SERTRALINE [Suspect]
     Active Substance: SERTRALINE HYDROCHLORIDE
     Indication: SUICIDE ATTEMPT
     Dosage: ROUTE OF ADMINISTRATION: INGST
     Route: 048

REACTIONS (1)
  - Completed suicide [Fatal]
